FAERS Safety Report 11243407 (Version 1)
Quarter: 2015Q3

REPORT INFORMATION
  Report Type: Spontaneous
  Country: US (occurrence: US)
  Receive Date: 20150707
  Receipt Date: 20150707
  Transmission Date: 20151125
  Serious: Yes (Hospitalization)
  Sender: FDA-Public Use
  Company Number: US-HOSPIRA-2924311

PATIENT
  Age: 52 Year
  Sex: Male

DRUGS (6)
  1. NIMODIPINE. [Concomitant]
     Active Substance: NIMODIPINE
     Indication: PROPHYLAXIS
  2. VERAPAMIL HYDROCHLORIDE. [Suspect]
     Active Substance: VERAPAMIL HYDROCHLORIDE
     Indication: CEREBRAL VASOCONSTRICTION
     Route: 013
  3. ASPIRIN                            /00002701/ [Concomitant]
     Active Substance: ASPIRIN
     Indication: PROPHYLAXIS
     Dosage: DAILY
  4. ASPIRIN                            /00002701/ [Concomitant]
     Active Substance: ASPIRIN
     Indication: CEREBRAL VASOCONSTRICTION
     Dosage: DAILY
  5. NIMODIPINE. [Concomitant]
     Active Substance: NIMODIPINE
     Indication: CEREBRAL VASOCONSTRICTION
  6. HEPARIN [Concomitant]
     Active Substance: HEPARIN SODIUM
     Indication: DEEP VEIN THROMBOSIS
     Route: 042

REACTIONS (2)
  - Procedural complication [Recovered/Resolved]
  - Monoplegia [Recovered/Resolved]
